FAERS Safety Report 4327738-9 (Version None)
Quarter: 2004Q1

REPORT INFORMATION
  Report Type: 
  Country: None (occurrence: None)
  Receive Date: 20040325
  Receipt Date: 20040312
  Transmission Date: 20041129
  Serious: Yes (Hospitalization)
  Sender: FDA-Public Use
  Company Number: 04P-163-0253172-00

PATIENT
  Age: 74 Year
  Sex: Female
  Weight: 42.6381 kg

DRUGS (9)
  1. HUMIRA [Suspect]
     Indication: RHEUMATOID ARTHRITIS
     Dosage: 40 MG, SUBCUTANEOUS
     Route: 058
     Dates: start: 20031201, end: 20031201
  2. HUMIRA [Suspect]
     Indication: RHEUMATOID ARTHRITIS
     Dosage: 40 MG, SUBCUTANEOUS
     Route: 058
     Dates: start: 20040227
  3. CELECOXIB [Concomitant]
  4. HYDROCCA [Concomitant]
  5. FAMOTIDINE [Concomitant]
  6. PREDNISOLONE [Concomitant]
  7. PANTOPRAZOLE [Concomitant]
  8. CLONAZEPAM [Concomitant]
  9. CALCIUM [Concomitant]

REACTIONS (2)
  - BRONCHITIS ACUTE [None]
  - INFECTION [None]
